FAERS Safety Report 7065022-3 (Version None)
Quarter: 2010Q4

REPORT INFORMATION
  Report Type: 
  Country: None (occurrence: None)
  Receive Date: 20101019
  Receipt Date: 20101011
  Transmission Date: 20110411
  Serious: Yes (Other)
  Sender: FDA-Public Use
  Company Number: 2010SP054300

PATIENT
  Age: 80 Year
  Sex: Male

DRUGS (4)
  1. CELESTODERM V (BETAMETHASONE VALERATE) (BETAMETHASONE VALERATE /000085 [Suspect]
     Indication: SKIN LESION
  2. KARVEA [Concomitant]
  3. FLUCINAL [Concomitant]
  4. VALERIANA [Concomitant]

REACTIONS (2)
  - BLOOD PRESSURE INCREASED [None]
  - OFF LABEL USE [None]
